FAERS Safety Report 22535656 (Version 1)
Quarter: 2023Q2

REPORT INFORMATION
  Report Type: Spontaneous
  Country: US (occurrence: US)
  Receive Date: 20230608
  Receipt Date: 20230608
  Transmission Date: 20230721
  Serious: No
  Sender: FDA-Public Use
  Company Number: US-SA-SAC20230606000015

PATIENT
  Age: 57 Year
  Sex: Female
  Weight: 59.8 kg

DRUGS (3)
  1. DUPIXENT [Suspect]
     Active Substance: DUPILUMAB
     Indication: Dermatitis atopic
     Dosage: 300 MG, QOW
     Route: 058
     Dates: start: 202112
  2. CORTISONE ACETATE [Concomitant]
     Active Substance: CORTISONE ACETATE
     Dosage: UNK
  3. CORTISONE [Concomitant]
     Active Substance: CORTISONE
     Dosage: UNK

REACTIONS (4)
  - Urinary tract infection [Not Recovered/Not Resolved]
  - Eye infection [Unknown]
  - Pruritus [Recovering/Resolving]
  - Eye inflammation [Unknown]

NARRATIVE: CASE EVENT DATE: 20230501
